FAERS Safety Report 13197592 (Version 1)
Quarter: 2017Q1

REPORT INFORMATION
  Report Type: Spontaneous
  Country: US (occurrence: US)
  Receive Date: 20170207
  Receipt Date: 20170207
  Transmission Date: 20170428
  Serious: No
  Sender: FDA-Public Use
  Company Number: None

PATIENT
  Age: 58 Year
  Sex: Female

DRUGS (1)
  1. CAPECITABINE 500MG ACCORD HEALTHCARE, INC [Suspect]
     Active Substance: CAPECITABINE
     Indication: PRODUCT USED FOR UNKNOWN INDICATION
     Dosage: 1500MG TWICE A DAY 2 WEEKS ON THEN BY MOUTH
     Route: 048
     Dates: start: 20170122

REACTIONS (2)
  - Oral discomfort [None]
  - Nasal pruritus [None]

NARRATIVE: CASE EVENT DATE: 20170131
